FAERS Safety Report 17952564 (Version 2)
Quarter: 2021Q1

REPORT INFORMATION
  Report Type: Spontaneous
  Country: US (occurrence: US)
  Receive Date: 20200626
  Receipt Date: 20210331
  Transmission Date: 20210419
  Serious: No
  Sender: FDA-Public Use
  Company Number: US-AMGEN-USA-20200207903

PATIENT
  Age: 35 Year
  Sex: Female

DRUGS (4)
  1. OTEZLA [Suspect]
     Active Substance: APREMILAST
     Indication: PSORIASIS
     Dosage: 30 MILLIGRAM, BID
     Route: 048
     Dates: start: 20190714
  2. OTEZLA [Suspect]
     Active Substance: APREMILAST
     Indication: PALMOPLANTAR PUSTULOSIS
     Dosage: 30 MILLIGRAM, BID
     Route: 048
  3. AZELAIC ACID. [Concomitant]
     Active Substance: AZELAIC ACID
     Dosage: UNK
  4. SPIRONOLACTON [Concomitant]
     Active Substance: SPIRONOLACTONE
     Dosage: UNK

REACTIONS (3)
  - Palmoplantar pustulosis [Not Recovered/Not Resolved]
  - Psoriasis [Not Recovered/Not Resolved]
  - Product dose omission issue [Unknown]

NARRATIVE: CASE EVENT DATE: 20200210
